FAERS Safety Report 8471383-0 (Version None)
Quarter: 2012Q2

REPORT INFORMATION
  Report Type: 
  Country: None (occurrence: None)
  Receive Date: 20120627
  Receipt Date: 20120625
  Transmission Date: 20120825
  Serious: Yes (Hospitalization)
  Sender: FDA-Public Use
  Company Number: US-PFIZER INC-2012152686

PATIENT
  Sex: Female
  Weight: 90.703 kg

DRUGS (6)
  1. PROBIOTICS [Concomitant]
     Dosage: UNK
  2. ADVAIR HFA [Concomitant]
     Indication: ASTHMA
     Dosage: UNK
  3. NORVASC [Suspect]
     Indication: BLOOD PRESSURE ABNORMAL
     Dosage: 5 MG, DAILY
  4. IPRATROPIUM BROMIDE AND ALBUTEROL SULFATE [Concomitant]
     Indication: ASTHMA
     Dosage: UNK
  5. FISH OIL [Concomitant]
     Dosage: UNK
  6. CELEBREX [Concomitant]
     Indication: FIBROMYALGIA
     Dosage: UNK

REACTIONS (1)
  - CEREBROVASCULAR ACCIDENT [None]
